FAERS Safety Report 20166395 (Version 1)
Quarter: 2021Q4

REPORT INFORMATION
  Report Type: Spontaneous
  Country: US (occurrence: None)
  Receive Date: 20211208
  Receipt Date: 20211208
  Transmission Date: 20220303
  Serious: No
  Sender: FDA-Public Use
  Company Number: None

PATIENT
  Age: 56 Year
  Sex: Female
  Weight: 71.67 kg

DRUGS (1)
  1. CASIRIVIMAB [Suspect]
     Active Substance: CASIRIVIMAB
     Indication: COVID-19 treatment
     Route: 058
     Dates: start: 20211129, end: 20211129

REACTIONS (3)
  - Product dispensing error [None]
  - Product preparation error [None]
  - Product label issue [None]

NARRATIVE: CASE EVENT DATE: 20211129
